FAERS Safety Report 5634384-3 (Version None)
Quarter: 2008Q1

REPORT INFORMATION
  Report Type: 
  Country: None (occurrence: None)
  Receive Date: 20080222
  Receipt Date: 20080214
  Transmission Date: 20080703
  Serious: Yes (Life-Threatening, Hospitalization, Other)
  Sender: FDA-Public Use
  Company Number: US-JNJFOC-20080203660

PATIENT
  Age: 41 Year
  Sex: Male

DRUGS (1)
  1. TYLOX [Suspect]
     Indication: ANALGESIA
     Dosage: ONE TO TWO TABLETS EVERY FOUR TO SIX HOURS AS NEEDED
     Route: 065

REACTIONS (1)
  - DRUG TOXICITY [None]
